FAERS Safety Report 5338948-6 (Version None)
Quarter: 2007Q2

REPORT INFORMATION
  Report Type: 
  Country: None (occurrence: None)
  Receive Date: 20070530
  Receipt Date: 20070521
  Transmission Date: 20071010
  Serious: Yes (Other)
  Sender: FDA-Public Use
  Company Number: SE-PFIZER INC-2007038250

PATIENT
  Age: 15 Year
  Sex: Female

DRUGS (1)
  1. SOLU-CORTEF [Suspect]

REACTIONS (4)
  - FLUSHING [None]
  - HYPERSENSITIVITY [None]
  - PHARYNGEAL OEDEMA [None]
  - URTICARIA [None]
